FAERS Safety Report 4976983-8 (Version None)
Quarter: 2006Q2

REPORT INFORMATION
  Report Type: 
  Country: None (occurrence: None)
  Receive Date: 20060412
  Receipt Date: 20060406
  Transmission Date: 20061013
  Serious: No
  Sender: FDA-Public Use
  Company Number: TAP2006Q00653

PATIENT
  Age: 6 Year
  Sex: Female
  Weight: 22.5 kg

DRUGS (1)
  1. PREVACID [Suspect]
     Indication: GASTROOESOPHAGEAL REFLUX DISEASE
     Dosage: 15 MG, 2 IN 1 D, ORAL
     Route: 048
     Dates: start: 20060327, end: 20060406

REACTIONS (2)
  - HALLUCINATION, VISUAL [None]
  - HEADACHE [None]
